FAERS Safety Report 6752919-4 (Version None)
Quarter: 2010Q2

REPORT INFORMATION
  Report Type: 
  Country: None (occurrence: None)
  Receive Date: 20100602
  Receipt Date: 20100602
  Transmission Date: 20101027
  Serious: Yes (Other)
  Sender: FDA-Public Use
  Company Number: None

PATIENT
  Age: 49 Year
  Sex: Female
  Weight: 90.7194 kg

DRUGS (2)
  1. ZYRTEC [Suspect]
     Indication: BRONCHITIS
     Dosage: 1 24 HOURS PO
     Route: 048
     Dates: start: 20100326, end: 20100528
  2. ZYRTEC [Suspect]
     Indication: SINUSITIS
     Dosage: 1 24 HOURS PO
     Route: 048
     Dates: start: 20100326, end: 20100528

REACTIONS (4)
  - CHEST DISCOMFORT [None]
  - DYSPNOEA [None]
  - NERVOUSNESS [None]
  - URTICARIA [None]
